FAERS Safety Report 4719858-1 (Version None)
Quarter: 2005Q3

REPORT INFORMATION
  Report Type: 
  Country: None (occurrence: None)
  Receive Date: 20050721
  Receipt Date: 20041207
  Transmission Date: 20060218
  Serious: Yes (Other)
  Sender: FDA-Public Use
  Company Number: US-GLAXOSMITHKLINE-A0537137A

PATIENT
  Age: 55 Year
  Sex: Male

DRUGS (17)
  1. AVANDIA [Suspect]
     Dosage: 8MG PER DAY
     Route: 048
     Dates: start: 20000323, end: 20010406
  2. LIPITOR [Concomitant]
  3. AMIODARONE [Concomitant]
  4. INSULIN [Concomitant]
  5. LANOXIN [Concomitant]
  6. LASIX [Concomitant]
  7. COZAAR [Concomitant]
  8. NEURONTIN [Concomitant]
  9. GLUCOPHAGE [Concomitant]
  10. AMITRIPTYLINE HCL [Concomitant]
  11. METOPROLOL [Concomitant]
  12. AMARYL [Concomitant]
  13. COREG [Concomitant]
  14. WELCHOL [Concomitant]
  15. NITROGLYCERIN [Concomitant]
  16. ASPIRIN [Concomitant]
  17. ACTOS [Concomitant]

REACTIONS (1)
  - CARDIAC FAILURE CONGESTIVE [None]
